FAERS Safety Report 8551970-1 (Version None)
Quarter: 2012Q3

REPORT INFORMATION
  Report Type: 
  Country: None (occurrence: None)
  Receive Date: 20120730
  Receipt Date: 20120723
  Transmission Date: 20120928
  Serious: Yes (Death, Other)
  Sender: FDA-Public Use
  Company Number: IT-CELGENEUS-083-21880-12010356

PATIENT
  Sex: Male

DRUGS (11)
  1. REVLIMID [Suspect]
     Dosage: 10 MILLIGRAM
     Route: 048
     Dates: start: 20091212, end: 20100205
  2. REVLIMID [Suspect]
     Route: 048
     Dates: start: 20100510, end: 20100607
  3. LANSOPRAZOLE [Concomitant]
     Dosage: 30 MILLIGRAM
     Route: 065
  4. ASPIRIN [Concomitant]
     Route: 065
  5. LACTULOSE [Concomitant]
     Route: 065
  6. REVLIMID [Suspect]
     Dosage: 10 MILLIGRAM
     Route: 048
     Dates: start: 20101213, end: 20110110
  7. TRIMETHOPRIM [Concomitant]
     Route: 065
  8. CARVEDILOL [Concomitant]
     Route: 065
  9. REVLIMID [Suspect]
     Indication: MANTLE CELL LYMPHOMA RECURRENT
     Dosage: 10 MILLIGRAM
     Route: 048
     Dates: start: 20090902, end: 20090908
  10. REVLIMID [Suspect]
     Dosage: 10 MILLIGRAM
     Route: 048
     Dates: start: 20110620, end: 20110718
  11. LASIX [Concomitant]
     Route: 065

REACTIONS (1)
  - DEATH [None]
